FAERS Safety Report 6600285-7 (Version None)
Quarter: 2010Q1

REPORT INFORMATION
  Report Type: 
  Country: None (occurrence: None)
  Receive Date: 20100224
  Receipt Date: 20100216
  Transmission Date: 20100710
  Serious: Yes (Other)
  Sender: FDA-Public Use
  Company Number: GB-PFIZER INC-2010019796

PATIENT
  Age: 39 Year
  Sex: Male
  Weight: 70 kg

DRUGS (2)
  1. CHAMPIX [Suspect]
     Indication: NICOTINE DEPENDENCE
     Dosage: 1 MG, 2X/DAY
     Route: 048
     Dates: start: 20081201, end: 20090901
  2. NAPROXEN [Concomitant]
     Indication: BACK PAIN
     Dosage: 500 MG, 2X/DAY
     Route: 048
     Dates: start: 20070101

REACTIONS (3)
  - CYANOSIS [None]
  - HYPOAESTHESIA [None]
  - SKIN EXFOLIATION [None]
